FAERS Safety Report 25588564 (Version 1)
Quarter: 2025Q3

REPORT INFORMATION
  Report Type: Spontaneous
  Country: US (occurrence: US)
  Receive Date: 20250722
  Receipt Date: 20250722
  Transmission Date: 20251021
  Serious: Yes (Hospitalization)
  Sender: PACIRA
  Company Number: US-ORG100016242-2025000278

PATIENT
  Age: 35 Year
  Sex: Male

DRUGS (5)
  1. EXPAREL [Suspect]
     Active Substance: BUPIVACAINE
     Indication: Spinal fusion surgery
     Route: 065
     Dates: start: 20250710, end: 20250710
  2. PROPOFOL [Suspect]
     Active Substance: PROPOFOL
     Indication: General anaesthesia
     Route: 050
     Dates: start: 20250710, end: 20250710
  3. VERSED [Suspect]
     Active Substance: MIDAZOLAM HYDROCHLORIDE
     Indication: General anaesthesia
     Route: 042
     Dates: start: 20250710, end: 20250710
  4. FENTANYL [Suspect]
     Active Substance: FENTANYL
     Indication: General anaesthesia
     Route: 042
     Dates: start: 20250710, end: 20250710
  5. HYDROMORPHONE [Suspect]
     Active Substance: HYDROMORPHONE
     Indication: General anaesthesia
     Route: 042
     Dates: start: 20250710, end: 20250710

REACTIONS (12)
  - Negative pressure pulmonary oedema [Unknown]
  - Hypocapnia [Unknown]
  - Somnolence [Unknown]
  - Delayed recovery from anaesthesia [Unknown]
  - Motor dysfunction [Unknown]
  - Oxygen saturation decreased [Unknown]
  - Sinus tachycardia [Unknown]
  - Bradycardia [Unknown]
  - Hypertension [Unknown]
  - Cough [Unknown]
  - Hyperhidrosis [Unknown]
  - Asthenia [Unknown]

NARRATIVE: CASE EVENT DATE: 20250707
